FAERS Safety Report 4722731-6 (Version None)
Quarter: 2005Q3

REPORT INFORMATION
  Report Type: 
  Country: None (occurrence: None)
  Receive Date: 20050719
  Receipt Date: 20041004
  Transmission Date: 20060218
  Serious: Yes (Other)
  Sender: FDA-Public Use
  Company Number: 2004237734US

PATIENT
  Sex: Female

DRUGS (3)
  1. CELEBREX [Suspect]
     Route: 065
  2. VOLTAREN [Concomitant]
  3. VIOXX [Concomitant]

REACTIONS (1)
  - MYOCARDIAL INFARCTION [None]
